FAERS Safety Report 7825047-4 (Version None)
Quarter: 2011Q4

REPORT INFORMATION
  Report Type: 
  Country: None (occurrence: None)
  Receive Date: 20111019
  Receipt Date: 20110419
  Transmission Date: 20120403
  Serious: Yes (Other)
  Sender: FDA-Public Use
  Company Number: US-BRISTOL-MYERS SQUIBB COMPANY-15683980

PATIENT
  Age: 60 Year
  Sex: Female
  Weight: 73 kg

DRUGS (7)
  1. AVALIDE [Suspect]
     Dosage: 1 DF = 150/12.5 MG PILLS,INITIAL DOSE:300/25MG
  2. PREDNISONE [Concomitant]
     Indication: SINUSITIS
  3. OXYCODONE HCL [Concomitant]
     Indication: PAIN
  4. MEPROBAMATE [Concomitant]
  5. CLIMARA [Concomitant]
     Dosage: PATCH
  6. PRAVASTATIN [Concomitant]
  7. TOPROL-XL [Concomitant]

REACTIONS (2)
  - PRURITUS [None]
  - URTICARIA [None]
